FAERS Safety Report 18005783 (Version 4)
Quarter: 2020Q3

REPORT INFORMATION
  Report Type: Spontaneous
  Country: JP (occurrence: JP)
  Receive Date: 20200710
  Receipt Date: 20200916
  Transmission Date: 20201103
  Serious: Yes (Other)
  Sender: FDA-Public Use
  Company Number: NVSJ2020JP006502

PATIENT
  Age: 82 Year
  Sex: Male

DRUGS (2)
  1. BEOVU [Suspect]
     Active Substance: BROLUCIZUMAB-DBLL
     Indication: AGE-RELATED MACULAR DEGENERATION
     Dosage: 0.05 ML
     Route: 031
     Dates: start: 20200625, end: 20200625
  2. GATIFLO [Concomitant]
     Active Substance: GATIFLOXACIN
     Indication: INFECTION PROPHYLAXIS
     Dosage: 1 DROP, QID
     Route: 047
     Dates: start: 20200625, end: 20200625

REACTIONS (1)
  - Blood pressure increased [Unknown]

NARRATIVE: CASE EVENT DATE: 20200626
